FAERS Safety Report 7830511-8 (Version None)
Quarter: 2011Q4

REPORT INFORMATION
  Report Type: 
  Country: None (occurrence: None)
  Receive Date: 20111021
  Receipt Date: 20111013
  Transmission Date: 20120403
  Serious: Yes (Other)
  Sender: FDA-Public Use
  Company Number: CH-ABBOTT-11P-151-0855289-00

PATIENT
  Age: 58 Year
  Sex: Female

DRUGS (12)
  1. SIBUTRAMINE HYDROCHLORIDE MONOHYDRATE [Concomitant]
     Indication: PRODUCT USED FOR UNKNOWN INDICATION
  2. ADALIMUMAB [Suspect]
     Indication: RHEUMATOID ARTHRITIS
  3. ACYCLOVIR [Suspect]
     Indication: MENINGEAL DISORDER
  4. ALENDRONATE SODIUM [Concomitant]
     Indication: PRODUCT USED FOR UNKNOWN INDICATION
  5. CALCIUM CARBONATE [Concomitant]
     Indication: PRODUCT USED FOR UNKNOWN INDICATION
  6. LEVOTHYROXINE SODIUM [Concomitant]
     Indication: PRODUCT USED FOR UNKNOWN INDICATION
  7. CHONDROITIN [Concomitant]
     Indication: PRODUCT USED FOR UNKNOWN INDICATION
  8. CHOLECALCIFEROL [Concomitant]
     Indication: PRODUCT USED FOR UNKNOWN INDICATION
  9. METHOTREXATE [Suspect]
     Indication: RHEUMATOID ARTHRITIS
  10. VALPROATE SODIUM [Suspect]
     Indication: PARTIAL SEIZURES
  11. DOXIUM [Concomitant]
     Indication: PRODUCT USED FOR UNKNOWN INDICATION
  12. BIOTIN [Concomitant]
     Indication: PRODUCT USED FOR UNKNOWN INDICATION

REACTIONS (4)
  - PARTIAL SEIZURES [None]
  - RHEUMATOID ARTHRITIS [None]
  - MENINGITIS [None]
  - CONVULSION [None]
